FAERS Safety Report 22076003 (Version 1)
Quarter: 2023Q1

REPORT INFORMATION
  Report Type: Spontaneous
  Country: US (occurrence: US)
  Receive Date: 20230308
  Receipt Date: 20230308
  Transmission Date: 20230417
  Serious: Yes (Other)
  Sender: FDA-Public Use
  Company Number: US-drreddys-SPO/USA/23/0161792

PATIENT
  Age: 18 Year
  Sex: Male

DRUGS (1)
  1. ZENATANE [Suspect]
     Active Substance: ISOTRETINOIN
     Indication: Acne
     Dosage: RMA ISSUE DATE: 28 JUNE 2022 03:48:30 PM, 30 AUGUST 2022 05:26:01 PM, 29 SEPTEMBER 2022 11:33:24 AM,

REACTIONS (1)
  - Confusional state [Unknown]
